FAERS Safety Report 21400185 (Version 1)
Quarter: 2022Q4

REPORT INFORMATION
  Report Type: Spontaneous
  Country: US (occurrence: US)
  Receive Date: 20221002
  Receipt Date: 20221002
  Transmission Date: 20230113
  Serious: No
  Sender: FDA-Public Use
  Company Number: US-ELI_LILLY_AND_COMPANY-US202209011276

PATIENT
  Sex: Male

DRUGS (9)
  1. TALTZ [Suspect]
     Active Substance: IXEKIZUMAB
     Indication: Product used for unknown indication
     Dosage: UNK UNK, UNKNOWN
     Route: 065
  2. TALTZ [Suspect]
     Active Substance: IXEKIZUMAB
     Indication: Product used for unknown indication
     Dosage: UNK UNK, UNKNOWN
     Route: 065
  3. TALTZ [Suspect]
     Active Substance: IXEKIZUMAB
     Dosage: UNK UNK, UNKNOWN
     Route: 065
  4. TALTZ [Suspect]
     Active Substance: IXEKIZUMAB
     Dosage: UNK UNK, UNKNOWN
     Route: 065
  5. INDOMETHACIN [Concomitant]
     Active Substance: INDOMETHACIN
     Indication: Product used for unknown indication
     Dosage: 150 MG, UNKNOWN
     Route: 065
  6. GABAPENTIN [Concomitant]
     Active Substance: GABAPENTIN
     Indication: Product used for unknown indication
     Dosage: UNK UNK, UNKNOWN
     Route: 065
  7. DULOXETINE [Concomitant]
     Active Substance: DULOXETINE
     Indication: Product used for unknown indication
     Dosage: 60 MG, UNKNOWN
     Route: 065
  8. CYTOTEC [Concomitant]
     Active Substance: MISOPROSTOL
     Indication: Product used for unknown indication
     Dosage: 200 MG, UNKNOWN
     Route: 065
  9. SULFASALAZINE [Concomitant]
     Active Substance: SULFASALAZINE
     Indication: Product used for unknown indication
     Dosage: UNK UNK, UNKNOWN
     Route: 065

REACTIONS (3)
  - Injection site pain [Unknown]
  - Injection site mass [Unknown]
  - Injection site haemorrhage [Unknown]
